FAERS Safety Report 23550849 (Version 1)
Quarter: 2024Q1

REPORT INFORMATION
  Report Type: Spontaneous
  Country: US (occurrence: US)
  Receive Date: 20240221
  Receipt Date: 20240221
  Transmission Date: 20240409
  Serious: No
  Sender: FDA-Public Use
  Company Number: US-009507513-2402USA007145

PATIENT
  Age: 57 Year
  Sex: Male

DRUGS (3)
  1. TEMODAR [Suspect]
     Active Substance: TEMOZOLOMIDE
     Indication: Glioblastoma
     Route: 048
  2. OLAPARIB [Concomitant]
     Active Substance: OLAPARIB
     Indication: Glioblastoma
  3. AFATINIB [Concomitant]
     Active Substance: AFATINIB
     Indication: Glioblastoma

REACTIONS (1)
  - Product use in unapproved indication [Unknown]
